FAERS Safety Report 8720025 (Version 2)
Quarter: 2012Q4

REPORT INFORMATION
  Report Type: 
  Country: NZ (occurrence: NZ)
  Receive Date: 20120813
  Receipt Date: 20121008
  Transmission Date: 20130627
  Serious: Yes (Other)
  Sender: FDA-Public Use
  Company Number: NZ-SANOFI-AVENTIS-2012SA055724

PATIENT
  Age: 76 Year
  Sex: Female

DRUGS (5)
  1. ARAVA [Suspect]
     Indication: DRUG USE FOR UNKNOWN INDICATION
     Route: 048
     Dates: start: 20110801
  2. METHOTREXATE [Concomitant]
  3. PREDNISONE [Concomitant]
  4. ONDANSETRON [Concomitant]
  5. FOLIC ACID [Concomitant]

REACTIONS (3)
  - Transient ischaemic attack [Recovering/Resolving]
  - Photopsia [Unknown]
  - Visual acuity reduced [Unknown]
